FAERS Safety Report 19038245 (Version 2)
Quarter: 2021Q2

REPORT INFORMATION
  Report Type: Spontaneous
  Country: GB (occurrence: GB)
  Receive Date: 20210322
  Receipt Date: 20210407
  Transmission Date: 20210717
  Serious: Yes (Other)
  Sender: FDA-Public Use
  Company Number: GB-MYLANLABS-2021M1014847

PATIENT
  Age: 72 Year
  Sex: Male
  Weight: 56 kg

DRUGS (7)
  1. BISOPROLOL [Suspect]
     Active Substance: BISOPROLOL
     Dosage: UNK
     Route: 048
     Dates: start: 20210308
  2. AMLODIPINE [Concomitant]
     Active Substance: AMLODIPINE BESYLATE
     Indication: ILL-DEFINED DISORDER
     Dosage: TAKE ONE DAILY
     Dates: start: 20210105
  3. OMEPRAZOLE. [Concomitant]
     Active Substance: OMEPRAZOLE
     Indication: ILL-DEFINED DISORDER
     Dosage: TAKE ONE DAILY
     Dates: start: 20210308
  4. BISOPROLOL [Suspect]
     Active Substance: BISOPROLOL
     Indication: ILL-DEFINED DISORDER
     Dosage: 2.5 MILLIGRAM
     Route: 048
     Dates: start: 20210119
  5. BISOPROLOL [Concomitant]
     Active Substance: BISOPROLOL
     Indication: ILL-DEFINED DISORDER
     Dosage: TAKE ONE DAILY
     Dates: start: 20210119, end: 20210308
  6. PHOLCODINE [Concomitant]
     Active Substance: PHOLCODINE
     Indication: ILL-DEFINED DISORDER
     Dosage: 1X5ML SPOON 3 TIMES/DAY
     Dates: start: 20210210, end: 20210220
  7. BISOPROLOL [Suspect]
     Active Substance: BISOPROLOL
     Dosage: UNK
     Dates: start: 20210308

REACTIONS (1)
  - Skin discolouration [Recovering/Resolving]

NARRATIVE: CASE EVENT DATE: 20210308
